FAERS Safety Report 22205322 (Version 1)
Quarter: 2023Q2

REPORT INFORMATION
  Report Type: Spontaneous
  Country: US (occurrence: US)
  Receive Date: 20230413
  Receipt Date: 20230413
  Transmission Date: 20230722
  Serious: No
  Sender: FDA-Public Use
  Company Number: US-CADILA HEALTHCARE LIMITED-US-ZYDUS-089389

PATIENT

DRUGS (1)
  1. LENALIDOMIDE [Suspect]
     Active Substance: LENALIDOMIDE
     Indication: Plasma cell myeloma
     Dosage: FOR 21 DAYS ON THEN 7 DAYS OFF
     Route: 048
     Dates: start: 202303

REACTIONS (4)
  - Nausea [Unknown]
  - Decreased appetite [Unknown]
  - Lethargy [Unknown]
  - Nasopharyngitis [Unknown]
